FAERS Safety Report 25686414 (Version 1)
Quarter: 2025Q3

REPORT INFORMATION
  Report Type: Spontaneous
  Country: CN (occurrence: CN)
  Receive Date: 20250815
  Receipt Date: 20250815
  Transmission Date: 20251020
  Serious: Yes (Hospitalization, Other)
  Sender: MERCK SHARP & DOHME LLC
  Company Number: CN-009507513-2317066

PATIENT
  Age: 61 Year
  Sex: Male
  Weight: 51 kg

DRUGS (2)
  1. PEMBROLIZUMAB [Suspect]
     Active Substance: PEMBROLIZUMAB
     Indication: Oesophageal carcinoma
     Dosage: 200 MG, EVERY 21 DAYS, IV DRIP
     Route: 041
     Dates: start: 20240904, end: 20250625
  2. SODIUM CHLORIDE [Concomitant]
     Active Substance: SODIUM CHLORIDE
     Dosage: STRENGTH: 0.9%, 100 ML, EVERY 21 DAYS, IV DRIP
     Route: 041
     Dates: start: 20240904, end: 20250625

REACTIONS (11)
  - Colitis [Recovering/Resolving]
  - Pancreatic atrophy [Unknown]
  - Pancreatic duct dilatation [Unknown]
  - Nephrolithiasis [Unknown]
  - Malignant neoplasm progression [Unknown]
  - Pancreatic disorder [Unknown]
  - Adrenal disorder [Unknown]
  - Nephrocalcinosis [Unknown]
  - Adrenal neoplasm [Unknown]
  - Lymphadenopathy [Unknown]
  - Epstein-Barr virus test positive [Unknown]

NARRATIVE: CASE EVENT DATE: 20250720
